FAERS Safety Report 11833843 (Version 7)
Quarter: 2016Q2

REPORT INFORMATION
  Report Type: Report from Study
  Country: DE (occurrence: US)
  Receive Date: 20151214
  Receipt Date: 20160502
  Transmission Date: 20160815
  Serious: Yes (Hospitalization, Other)
  Sender: FDA-Public Use
  Company Number: US-ACTELION-A-NJ2015-128620

PATIENT
  Age: 41 Year
  Sex: Male
  Weight: 79.36 kg

DRUGS (11)
  1. SILDENAFIL. [Concomitant]
     Active Substance: SILDENAFIL
     Indication: PULMONARY ARTERIAL HYPERTENSION
  2. REMODULIN [Suspect]
     Active Substance: TREPROSTINIL
     Indication: PRODUCT USED FOR UNKNOWN INDICATION
     Route: 065
  3. RIOCIGUAT [Suspect]
     Active Substance: RIOCIGUAT
     Dosage: 2.5 MG, TID
     Route: 048
  4. VENTAVIS [Suspect]
     Active Substance: ILOPROST
     Indication: PULMONARY ARTERIAL HYPERTENSION
     Dosage: 5 MCG, 6-9X/DAY
     Route: 055
     Dates: start: 20100414
  5. RIOCIGUAT [Suspect]
     Active Substance: RIOCIGUAT
     Dosage: 0.5 MG, TID
     Route: 048
     Dates: start: 20160323
  6. WARFARIN [Concomitant]
     Active Substance: WARFARIN
  7. RIOCIGUAT [Suspect]
     Active Substance: RIOCIGUAT
     Dosage: 2.5 MG, TID
     Route: 048
  8. NORVASC [Concomitant]
     Active Substance: AMLODIPINE BESYLATE
  9. RIOCIGUAT [Suspect]
     Active Substance: RIOCIGUAT
     Indication: PULMONARY ARTERIAL HYPERTENSION
     Dosage: 0.5 MG, TID
     Route: 048
     Dates: start: 20151118, end: 20151215
  10. RIOCIGUAT [Suspect]
     Active Substance: RIOCIGUAT
     Dosage: 1 MG, TID
     Route: 048
     Dates: start: 20151216
  11. TYVASO [Suspect]
     Active Substance: TREPROSTINIL
     Indication: PRODUCT USED FOR UNKNOWN INDICATION
     Dosage: UNK
     Route: 065
     Dates: end: 201504

REACTIONS (17)
  - Nasopharyngitis [Unknown]
  - Injection site pain [Unknown]
  - Injection site swelling [Unknown]
  - Loss of consciousness [Unknown]
  - Head injury [Unknown]
  - Upper respiratory tract infection [Unknown]
  - Fluid overload [Recovering/Resolving]
  - Oxygen saturation decreased [Unknown]
  - Pulmonary oedema [Unknown]
  - Subdural haematoma [Unknown]
  - Traumatic intracranial haemorrhage [Unknown]
  - Cough [Unknown]
  - Syncope [Unknown]
  - Injection site erythema [Unknown]
  - Nausea [Unknown]
  - Hypotension [Unknown]
  - Throat irritation [Unknown]
